FAERS Safety Report 4507102-X (Version None)
Quarter: 2004Q4

REPORT INFORMATION
  Report Type: 
  Country: None (occurrence: None)
  Receive Date: 20041118
  Receipt Date: 20041101
  Transmission Date: 20050328
  Serious: Yes (Death)
  Sender: FDA-Public Use
  Company Number: B0349827A

PATIENT
  Age: 24 Year
  Sex: 0

DRUGS (4)
  1. PAROXETINE HCL [Suspect]
     Dosage: ORAL
     Route: 048
  2. DIPHENHYDRAMINE+PARACETA. (FORMULATION UNKNOWN) (ACETAMINOPHEN + DIPHE [Suspect]
     Dosage: ORAL
     Route: 048
  3. ETHANOL (FORMULATION UNKNOWN) (ALCOHOL) [Suspect]
     Dosage: ORAL
     Route: 048
  4. UNKNOWN (FORMULATION UNKNOWN) (UNKNOWN) [Suspect]
     Dosage: ORAL
     Route: 048

REACTIONS (3)
  - CARDIO-RESPIRATORY ARREST [None]
  - COMPLETED SUICIDE [None]
  - DRUG SCREEN POSITIVE [None]
